FAERS Safety Report 5073516-5 (Version None)
Quarter: 2006Q3

REPORT INFORMATION
  Report Type: 
  Country: None (occurrence: None)
  Receive Date: 20060717
  Receipt Date: 20051207
  Transmission Date: 20061208
  Serious: No
  Sender: FDA-Public Use
  Company Number: 2005002352

PATIENT
  Sex: Female

DRUGS (1)
  1. TARCEVA [Suspect]
     Dosage: (QD), ORAL
     Route: 048
     Dates: start: 20050704

REACTIONS (4)
  - HYPOTRICHOSIS [None]
  - NAUSEA [None]
  - RASH [None]
  - SKIN DISORDER [None]
